FAERS Safety Report 8622796-5 (Version None)
Quarter: 2012Q3

REPORT INFORMATION
  Report Type: 
  Country: None (occurrence: None)
  Receive Date: 20120827
  Receipt Date: 20120822
  Transmission Date: 20120928
  Serious: No
  Sender: FDA-Public Use
  Company Number: US-BAYER-2012-053373

PATIENT
  Sex: Female

DRUGS (5)
  1. GADAVIST [Suspect]
     Indication: IMAGING PROCEDURE
     Dosage: 7 ML, ONCE
  2. ACETAMINOPHEN [Concomitant]
     Dosage: 1000 MG
  3. GLUCOSAMINE W/CHONDROITIN SULFATE [Concomitant]
     Dosage: 1200
  4. REMICADE [Concomitant]
  5. CALCIUM CARBONATE [Concomitant]
     Dosage: 600

REACTIONS (1)
  - NASAL CONGESTION [None]
